FAERS Safety Report 9775214 (Version 3)
Quarter: 2014Q1

REPORT INFORMATION
  Report Type: Spontaneous
  Country: US (occurrence: US)
  Receive Date: 20131220
  Receipt Date: 20140203
  Transmission Date: 20141002
  Serious: No
  Sender: FDA-Public Use
  Company Number: US-JNJFOC-20131204816

PATIENT
  Age: 49 Year
  Sex: Female
  Weight: 74.84 kg

DRUGS (5)
  1. DURAGESIC [Suspect]
     Indication: PAIN
     Route: 062
     Dates: start: 201312
  2. MYLAN FENTANYL TRANSDERMAL SYSTEM [Suspect]
     Indication: PRODUCT USED FOR UNKNOWN INDICATION
     Route: 062
     Dates: start: 2004, end: 201312
  3. LEXAPRO [Concomitant]
     Route: 065
  4. VALIUM [Concomitant]
     Route: 065
  5. AMITRIPTYLINE [Concomitant]
     Route: 065

REACTIONS (13)
  - Product quality issue [Unknown]
  - Wrong technique in drug usage process [Unknown]
  - Drug dose omission [Unknown]
  - Unevaluable event [Unknown]
  - Malaise [Unknown]
  - Pain [Not Recovered/Not Resolved]
  - Tremor [Not Recovered/Not Resolved]
  - Treatment noncompliance [Not Recovered/Not Resolved]
  - Wrong technique in drug usage process [Recovered/Resolved]
  - Product adhesion issue [Recovered/Resolved]
  - Drug ineffective [Unknown]
  - Product quality issue [Not Recovered/Not Resolved]
  - Wrong technique in drug usage process [Unknown]
